FAERS Safety Report 18190633 (Version 2)
Quarter: 2021Q2

REPORT INFORMATION
  Report Type: Spontaneous
  Country: US (occurrence: US)
  Receive Date: 20200824
  Receipt Date: 20210401
  Transmission Date: 20210717
  Serious: Yes (Death, Hospitalization, Other)
  Sender: FDA-Public Use
  Company Number: US-PURDUE-USA-2020-0162273

PATIENT
  Sex: Female

DRUGS (12)
  1. HEROIN [Suspect]
     Active Substance: DIAMORPHINE
     Indication: PRODUCT USED FOR UNKNOWN INDICATION
     Dosage: UNK
     Route: 065
  2. FENTANYL. [Suspect]
     Active Substance: FENTANYL
     Indication: PRODUCT USED FOR UNKNOWN INDICATION
     Dosage: UNK
     Route: 065
  3. OXYCONTIN [Suspect]
     Active Substance: OXYCODONE HYDROCHLORIDE
     Indication: HEADACHE
     Dosage: 20 MG, 40 MG, 80 MG, UNK
     Route: 048
  4. MS CONTIN [Suspect]
     Active Substance: MORPHINE SULFATE
     Indication: HEADACHE
     Dosage: UNK
     Route: 048
  5. ACTIQ [Suspect]
     Active Substance: FENTANYL CITRATE
     Indication: PRODUCT USED FOR UNKNOWN INDICATION
     Dosage: 1200 MCG, UNK
     Route: 048
  6. PENICILLIN VK [Concomitant]
     Active Substance: PENICILLIN V POTASSIUM
     Indication: PRODUCT USED FOR UNKNOWN INDICATION
     Dosage: 500 MG, UNK
     Route: 048
     Dates: start: 19970811
  7. HYDROCODONE BITARTRATE AND ACETAMINOPHEN [Suspect]
     Active Substance: ACETAMINOPHEN\HYDROCODONE BITARTRATE
     Indication: HEADACHE
     Dosage: 5 MG/500MG
     Route: 048
     Dates: start: 19970811
  8. MSIR TABLETS [Suspect]
     Active Substance: MORPHINE SULFATE
     Indication: HEADACHE
     Dosage: UNK
     Route: 048
  9. COCAINE [Suspect]
     Active Substance: COCAINE
     Indication: PRODUCT USED FOR UNKNOWN INDICATION
     Dosage: UNK
     Route: 048
  10. MELATONIN [Concomitant]
     Active Substance: MELATONIN
     Indication: PRODUCT USED FOR UNKNOWN INDICATION
     Dosage: 6?9MG
     Route: 048
  11. OXYCODONE HCL CR TABLETS (SIMILAR TO NDA 22?272) [Suspect]
     Active Substance: OXYCODONE HYDROCHLORIDE
     Indication: HEADACHE
     Dosage: 80 MG, UNK
     Route: 048
     Dates: start: 20040812
  12. MORPHINE SULFATE EXTENDED?RELEASE TABLETS (RHODES 74?769, 74?862) [Suspect]
     Active Substance: MORPHINE SULFATE
     Indication: HEADACHE
     Dosage: 30 MG, UNK
     Route: 048
     Dates: start: 20041130

REACTIONS (21)
  - Abdominal wall wound [Unknown]
  - Toxicity to various agents [Fatal]
  - Cholecystectomy [Unknown]
  - Hospitalisation [Unknown]
  - Jaundice [Unknown]
  - Anxiety [Unknown]
  - Neck pain [Unknown]
  - Quality of life decreased [Unknown]
  - Drug dependence [Unknown]
  - Thalassaemia beta [Unknown]
  - Emotional distress [Unknown]
  - Drug abuse [Unknown]
  - Hypothyroidism [Unknown]
  - Depression [Unknown]
  - Retrograde amnesia [Unknown]
  - Road traffic accident [Unknown]
  - Syncope [Unknown]
  - Biliary obstruction [Unknown]
  - Overdose [Unknown]
  - Surgery [Unknown]
  - Head injury [Unknown]

NARRATIVE: CASE EVENT DATE: 20180808
